FAERS Safety Report 6703019-0 (Version None)
Quarter: 2010Q2

REPORT INFORMATION
  Report Type: 
  Country: None (occurrence: None)
  Receive Date: 20100429
  Receipt Date: 20100429
  Transmission Date: 20101027
  Serious: No
  Sender: FDA-Public Use
  Company Number: None

PATIENT
  Age: 85 Year
  Sex: Female
  Weight: 90.7194 kg

DRUGS (1)
  1. MULTIHANCE [Suspect]
     Indication: OSTEOPENIA
     Dosage: 10ML ONCE IV BOLUS
     Route: 040

REACTIONS (2)
  - SWELLING FACE [None]
  - URTICARIA [None]
